FAERS Safety Report 7266953-1 (Version None)
Quarter: 2011Q1

REPORT INFORMATION
  Report Type: 
  Country: None (occurrence: None)
  Receive Date: 20110201
  Receipt Date: 20110124
  Transmission Date: 20110831
  Serious: Yes (Hospitalization)
  Sender: FDA-Public Use
  Company Number: FR-BRISTOL-MYERS SQUIBB COMPANY-15408115

PATIENT
  Age: 56 Year
  Sex: Female

DRUGS (11)
  1. CARBOPLATIN [Suspect]
     Dates: start: 20101001
  2. PRIMPERAN TAB [Concomitant]
  3. TAXOL [Suspect]
     Dosage: AND ON 07-OCT-2010
     Route: 042
     Dates: start: 20101001
  4. SOLU-MEDROL [Concomitant]
     Route: 042
  5. EMEND [Concomitant]
     Route: 042
  6. HERCEPTIN [Suspect]
     Dosage: STRENGHT:150MG
     Dates: start: 20100930
  7. ZOPHREN [Concomitant]
     Route: 042
  8. ZANTAC [Concomitant]
     Route: 042
  9. XYZAL [Concomitant]
  10. POLARAMINE [Concomitant]
     Dosage: AND UNKNOWN ROUTE
     Route: 042
  11. ATARAX [Concomitant]

REACTIONS (1)
  - INTERSTITIAL LUNG DISEASE [None]
